FAERS Safety Report 17285689 (Version 1)
Quarter: 2020Q1

REPORT INFORMATION
  Report Type: Spontaneous
  Country: FR (occurrence: FR)
  Receive Date: 20200117
  Receipt Date: 20200117
  Transmission Date: 20200409
  Serious: Yes (Death)
  Sender: FDA-Public Use
  Company Number: FR-009507513-2001FRA004514

PATIENT
  Age: 66 Year
  Sex: Female

DRUGS (2)
  1. KEYTRUDA [Suspect]
     Active Substance: PEMBROLIZUMAB
     Indication: LUNG ADENOCARCINOMA
     Dosage: 200 MILLIGRAM, CYCLICAL
     Route: 041
     Dates: start: 20171220, end: 20171220
  2. AUGMENTIN [Suspect]
     Active Substance: AMOXICILLIN\CLAVULANATE POTASSIUM
     Indication: PYREXIA
     Dosage: 3 DOSAGE FORM, QD
     Route: 048
     Dates: start: 20180320, end: 20180323

REACTIONS (2)
  - Myositis [Fatal]
  - Myocarditis [Fatal]

NARRATIVE: CASE EVENT DATE: 20180108
